FAERS Safety Report 20224939 (Version 1)
Quarter: 2021Q4

REPORT INFORMATION
  Report Type: Spontaneous
  Country: DK (occurrence: DK)
  Receive Date: 20211223
  Receipt Date: 20211223
  Transmission Date: 20220303
  Serious: Yes (Hospitalization, Other)
  Sender: FDA-Public Use
  Company Number: None

PATIENT
  Age: 37 Year
  Sex: Female

DRUGS (3)
  1. DUPIXENT [Suspect]
     Active Substance: DUPILUMAB
     Indication: Asthma
     Dosage: 300 MG, QOW
     Route: 058
     Dates: start: 20210608, end: 20211018
  2. PREDNISOLONE [Concomitant]
     Active Substance: PREDNISOLONE
     Indication: Seasonal allergy
     Dates: start: 20160503
  3. BETOLVEX [CYANOCOBALAMIN-TANNIN COMPLEX] [Concomitant]
     Indication: Vitamin B12 deficiency
     Dates: start: 20181113

REACTIONS (3)
  - Colitis [Not Recovered/Not Resolved]
  - Diarrhoea [Not Recovered/Not Resolved]
  - Diarrhoea haemorrhagic [Not Recovered/Not Resolved]

NARRATIVE: CASE EVENT DATE: 20210701
